FAERS Safety Report 7115081-4 (Version None)
Quarter: 2010Q4

REPORT INFORMATION
  Report Type: 
  Country: None (occurrence: None)
  Receive Date: 20101117
  Receipt Date: 20101117
  Transmission Date: 20110411
  Serious: Yes (Other)
  Sender: FDA-Public Use
  Company Number: None

PATIENT
  Age: 33 Year
  Sex: Male

DRUGS (1)
  1. CARBAMAZEPINE [Suspect]
     Dosage: 200 MG BID PO
     Route: 048
     Dates: start: 20100908, end: 20101021

REACTIONS (2)
  - OEDEMA PERIPHERAL [None]
  - RASH [None]
